FAERS Safety Report 8087251-2 (Version None)
Quarter: 2012Q1

REPORT INFORMATION
  Report Type: 
  Country: None (occurrence: None)
  Receive Date: 20120128
  Receipt Date: 20110516
  Transmission Date: 20120608
  Serious: No
  Sender: FDA-Public Use
  Company Number: US-ABBOTT-11P-163-0725834-00

PATIENT
  Age: 67 Year
  Sex: Female

DRUGS (1)
  1. HUMIRA [Suspect]
     Indication: RHEUMATOID ARTHRITIS
     Dates: start: 20110509

REACTIONS (4)
  - NASOPHARYNGITIS [None]
  - RHINORRHOEA [None]
  - INCREASED UPPER AIRWAY SECRETION [None]
  - COUGH [None]
